FAERS Safety Report 11452111 (Version 1)
Quarter: 2015Q3

REPORT INFORMATION
  Report Type: Report from Study
  Country: GB (occurrence: GB)
  Receive Date: 20150903
  Receipt Date: 20150903
  Transmission Date: 20151125
  Serious: Yes (Hospitalization)
  Sender: FDA-Public Use
  Company Number: GB-ASTRAZENECA-2015SE75674

PATIENT
  Age: 27391 Day
  Sex: Female
  Weight: 70.4 kg

DRUGS (10)
  1. VANDETANIB. [Suspect]
     Active Substance: VANDETANIB
     Indication: BREAST CANCER METASTATIC
     Route: 048
     Dates: start: 20150722, end: 20150731
  2. EKLIRA [Concomitant]
     Active Substance: ACLIDINIUM BROMIDE
     Route: 050
     Dates: start: 20100623
  3. FULVESTRANT [Suspect]
     Active Substance: FULVESTRANT
     Indication: BREAST CANCER METASTATIC
     Dosage: D1, D15, THEN D1 OF EACH 28 DAY CYCLE
     Route: 030
     Dates: start: 20150722
  4. VENTOLIN [Concomitant]
     Active Substance: ALBUTEROL SULFATE
     Dates: start: 20091103
  5. LANSOPRAZOLE. [Concomitant]
     Active Substance: LANSOPRAZOLE
     Route: 048
     Dates: start: 19990524
  6. METFORMIN [Concomitant]
     Active Substance: METFORMIN HYDROCHLORIDE
     Dosage: 850 MG TDS
     Dates: start: 20120830
  7. AMITRIPTYLINE [Concomitant]
     Active Substance: AMITRIPTYLINE
     Route: 048
     Dates: start: 20100630
  8. MAGNESIUM GLYCOPHOSPHATE [Concomitant]
     Dates: start: 20150715, end: 20150717
  9. CALCEOS [Concomitant]
     Active Substance: CALCIUM CARBONATE\CHOLECALCIFEROL
     Route: 048
  10. ALENDRONIC ACID [Concomitant]
     Active Substance: ALENDRONIC ACID
     Route: 048
     Dates: start: 20130501

REACTIONS (1)
  - Seizure [Recovered/Resolved]

NARRATIVE: CASE EVENT DATE: 20150801
